FAERS Safety Report 26186620 (Version 1)
Quarter: 2025Q4

REPORT INFORMATION
  Report Type: Spontaneous
  Country: US (occurrence: None)
  Receive Date: 20251219
  Receipt Date: 20251219
  Transmission Date: 20260118
  Serious: Yes (Hospitalization)
  Sender: FDA-CTU
  Company Number: None

PATIENT
  Age: 78 Year
  Sex: Male
  Weight: 115 kg

DRUGS (1)
  1. EDOXABAN [Suspect]
     Active Substance: EDOXABAN
     Indication: Atrial fibrillation
     Dosage: 60 MG EVERY DAY PO
     Route: 048
     Dates: start: 20250219, end: 20250704

REACTIONS (7)
  - Haematochezia [None]
  - Vomiting [None]
  - Haemoglobin decreased [None]
  - Haematocrit decreased [None]
  - Blood pressure decreased [None]
  - Haemorrhage [None]
  - Dizziness [None]

NARRATIVE: CASE EVENT DATE: 20250704
